FAERS Safety Report 6290391-1 (Version None)
Quarter: 2009Q3

REPORT INFORMATION
  Report Type: 
  Country: None (occurrence: None)
  Receive Date: 20090728
  Receipt Date: 20090728
  Transmission Date: 20100115
  Serious: No
  Sender: FDA-Public Use
  Company Number: None

PATIENT

DRUGS (2)
  1. SOTALOL HCL [Suspect]
  2. SOTALOL HCL [Suspect]

REACTIONS (6)
  - DRUG LABEL CONFUSION [None]
  - INTERCEPTED DRUG DISPENSING ERROR [None]
  - MEDICATION ERROR [None]
  - PRODUCT COLOUR ISSUE [None]
  - PRODUCT COMMINGLING [None]
  - PRODUCT SHAPE ISSUE [None]
